FAERS Safety Report 4691179-5 (Version None)
Quarter: 2005Q2

REPORT INFORMATION
  Report Type: 
  Country: None (occurrence: None)
  Receive Date: 20050610
  Receipt Date: 20050527
  Transmission Date: 20051028
  Serious: Yes (Other)
  Sender: FDA-Public Use
  Company Number: 209264

PATIENT
  Sex: Female

DRUGS (5)
  1. RITUXAN [Suspect]
     Dosage: INTRAVENOUS
     Route: 042
  2. CYCLOPHOSPHAMIDE [Suspect]
     Dosage: INTRAVENOUS
     Route: 042
  3. DOXORUBICIN HCL [Suspect]
     Dosage: INTRAVENOUS
     Route: 042
  4. VINCRISTINE [Suspect]
     Dosage: INTRAVENOUS
     Route: 042
  5. PREDNISONE [Suspect]
     Dosage: ORAL
     Route: 048

REACTIONS (1)
  - CARDIOTOXICITY [None]
